FAERS Safety Report 9606448 (Version 2)
Quarter: 2013Q4

REPORT INFORMATION
  Report Type: Spontaneous
  Country: NL (occurrence: NL)
  Receive Date: 20131008
  Receipt Date: 20131008
  Transmission Date: 20140711
  Serious: Yes (Other)
  Sender: FDA-Public Use
  Company Number: PHHY2013NL108990

PATIENT
  Age: 73 Year
  Sex: Female

DRUGS (9)
  1. METOCLOPRAMIDE [Suspect]
     Indication: NAUSEA
     Dosage: 10 MG, TID
  2. ESOMEPRAZOLE [Concomitant]
  3. METOPROLOL [Concomitant]
  4. NIFEDIPINE [Concomitant]
  5. TEMAZEPAM [Concomitant]
  6. OXAZEPAM [Concomitant]
  7. SEVELAMER [Concomitant]
  8. ALFACALCIDOL [Concomitant]
  9. ACENOCOUMAROL [Concomitant]

REACTIONS (12)
  - Parkinsonism [Recovered/Resolved]
  - Head titubation [Recovered/Resolved]
  - Tremor [Recovered/Resolved]
  - Fatigue [Not Recovered/Not Resolved]
  - Bradykinesia [Recovered/Resolved]
  - Gait disturbance [Recovering/Resolving]
  - Malaise [Not Recovered/Not Resolved]
  - Fear of falling [Recovered/Resolved]
  - Facial paresis [Recovered/Resolved]
  - Muscle rigidity [Recovered/Resolved]
  - Movement disorder [Recovered/Resolved]
  - General physical health deterioration [Unknown]
